FAERS Safety Report 13934050 (Version 1)
Quarter: 2017Q3

REPORT INFORMATION
  Report Type: Spontaneous
  Country: FR (occurrence: FR)
  Receive Date: 20170904
  Receipt Date: 20170904
  Transmission Date: 20171127
  Serious: Yes (Hospitalization)
  Sender: FDA-Public Use
  Company Number: FR-ASTRAZENECA-2017SE89039

PATIENT
  Age: 75 Year
  Sex: Male

DRUGS (7)
  1. XEROQUEL [Suspect]
     Active Substance: QUETIAPINE FUMARATE
     Indication: BIPOLAR DISORDER
     Route: 048
  2. KARDEGIC [Concomitant]
     Active Substance: ASPIRIN LYSINE
  3. TAMSULOSIN [Concomitant]
     Active Substance: TAMSULOSIN
  4. VALPROIC ACID. [Concomitant]
     Active Substance: VALPROIC ACID
  5. XEROQUEL [Suspect]
     Active Substance: QUETIAPINE FUMARATE
     Indication: BIPOLAR DISORDER
     Route: 048
     Dates: end: 20170804
  6. VALSARTAN. [Concomitant]
     Active Substance: VALSARTAN
  7. ESIDREX [Concomitant]
     Active Substance: HYDROCHLOROTHIAZIDE

REACTIONS (1)
  - Neuroleptic malignant syndrome [Recovered/Resolved]
